FAERS Safety Report 25852051 (Version 1)
Quarter: 2025Q3

REPORT INFORMATION
  Report Type: Spontaneous
  Country: EU (occurrence: EU)
  Receive Date: 20250926
  Receipt Date: 20250926
  Transmission Date: 20251021
  Serious: Yes (Hospitalization)
  Sender: NORDIC PHARMA
  Company Number: None

PATIENT
  Age: 15 Year
  Sex: Female
  Weight: 55 kg

DRUGS (3)
  1. METHOTREXATE [Suspect]
     Active Substance: METHOTREXATE
     Indication: Juvenile psoriatic arthritis
     Dosage: 10MG EVERY WEEK
     Route: 058
     Dates: start: 20240828
  2. MERCILON 0,15MG/0,02MG [Concomitant]
     Indication: Hormonal contraception
     Dosage: ADMINISTERED FROM 5/6/25 ONCE DAILY ORALLY (INITIATED IN GYNECOLOGY), AFTER A REACTION THE GIRL D...
     Route: 048
     Dates: start: 20250605, end: 20250608
  3. HYRIMOZ 40MG [Concomitant]
     Indication: Juvenile psoriatic arthritis
     Dosage: 40MG EVERY 2 WEEKS
     Route: 058
     Dates: start: 20240103

REACTIONS (6)
  - Palpitations [Recovered/Resolved]
  - Dyspnoea [Recovered/Resolved]
  - Presyncope [Recovered/Resolved]
  - Pyrexia [Recovered/Resolved]
  - Pain in extremity [Recovered/Resolved]
  - Musculoskeletal stiffness [Recovered/Resolved]

NARRATIVE: CASE EVENT DATE: 20250608
